FAERS Safety Report 21556332 (Version 1)
Quarter: 2022Q4

REPORT INFORMATION
  Report Type: Report from Study
  Country: DE (occurrence: DE)
  Receive Date: 20221104
  Receipt Date: 20221104
  Transmission Date: 20230113
  Serious: Yes (Other)
  Sender: FDA-Public Use
  Company Number: DE-TEVA-2022-DE-2821726

PATIENT
  Age: 41 Year
  Sex: Female

DRUGS (1)
  1. COPAXONE [Suspect]
     Active Substance: GLATIRAMER ACETATE
     Indication: Multiple sclerosis
     Dates: start: 20210802

REACTIONS (4)
  - Magnetic resonance imaging abnormal [Unknown]
  - Nasal inflammation [Recovered/Resolved]
  - Nasopharyngitis [Recovered/Resolved]
  - Rhinitis [Unknown]

NARRATIVE: CASE EVENT DATE: 20210101
